FAERS Safety Report 14203044 (Version 1)
Quarter: 2017Q4

REPORT INFORMATION
  Report Type: Spontaneous
  Country: US (occurrence: US)
  Receive Date: 20171120
  Receipt Date: 20171120
  Transmission Date: 20180321
  Serious: No
  Sender: FDA-Public Use
  Company Number: US-ELI_LILLY_AND_COMPANY-US201711003166

PATIENT
  Sex: Female

DRUGS (1)
  1. ZYPREXA [Suspect]
     Active Substance: OLANZAPINE
     Indication: BIPOLAR DISORDER
     Dosage: 2.5 MG, UNKNOWN
     Route: 065
     Dates: start: 2007

REACTIONS (5)
  - Ear pruritus [Unknown]
  - Drug intolerance [Unknown]
  - Sleep disorder [Unknown]
  - Throat irritation [Unknown]
  - Ear congestion [Unknown]
